FAERS Safety Report 13465395 (Version 1)
Quarter: 2017Q2

REPORT INFORMATION
  Report Type: Spontaneous
  Country: US (occurrence: US)
  Receive Date: 20170421
  Receipt Date: 20170421
  Transmission Date: 20170830
  Serious: No
  Sender: FDA-Public Use
  Company Number: US-TEVA-660037USA

PATIENT
  Sex: Male
  Weight: 106.24 kg

DRUGS (1)
  1. LEVALBUTEROL. [Suspect]
     Active Substance: LEVALBUTEROL
     Indication: EMPHYSEMA
     Dosage: 3 TIMES A DAY
     Route: 055

REACTIONS (3)
  - Eye irritation [Unknown]
  - Wrong technique in product usage process [Unknown]
  - Eye swelling [Unknown]
